FAERS Safety Report 6557412-X (Version None)
Quarter: 2010Q1

REPORT INFORMATION
  Report Type: 
  Country: None (occurrence: None)
  Receive Date: 20100129
  Receipt Date: 20100119
  Transmission Date: 20100710
  Serious: Yes (Hospitalization)
  Sender: FDA-Public Use
  Company Number: JP-JNJFOC-20100105271

PATIENT
  Sex: Female
  Weight: 58 kg

DRUGS (12)
  1. REMICADE [Suspect]
     Indication: RHEUMATOID ARTHRITIS
     Route: 042
  2. REMICADE [Suspect]
     Dosage: 2ND INFUSION
     Route: 042
  3. RHEUMATREX [Suspect]
     Indication: RHEUMATOID ARTHRITIS
     Route: 048
  4. PREDNISOLONE [Suspect]
     Indication: RHEUMATOID ARTHRITIS
     Route: 048
  5. RIMATIL [Concomitant]
     Indication: RHEUMATOID ARTHRITIS
     Route: 048
  6. FOLIAMIN [Concomitant]
     Indication: RHEUMATOID ARTHRITIS
     Route: 048
  7. METHYCOBAL [Concomitant]
     Indication: NEUROPATHY PERIPHERAL
     Route: 048
  8. PRORENAL [Concomitant]
     Indication: PERIPHERAL VASCULAR DISORDER
     Dosage: DOSE 5 RG, 3 TIMES DAILY
     Route: 048
  9. DORNER [Concomitant]
     Indication: PERIPHERAL VASCULAR DISORDER
     Dosage: DOSE 20 RG, 3 TIMES DAILY
     Route: 048
  10. BONALON [Concomitant]
     Indication: OSTEOPOROSIS
     Route: 048
  11. CELECOX [Concomitant]
     Indication: OSTEOARTHRITIS
     Route: 048
  12. MUCOSTA [Concomitant]
     Indication: GASTRITIS
     Route: 048

REACTIONS (2)
  - ANIMAL SCRATCH [None]
  - SYNOVIAL CYST [None]
